FAERS Safety Report 9147644 (Version 1)
Quarter: 2013Q1

REPORT INFORMATION
  Report Type: Spontaneous
  Country: US (occurrence: US)
  Receive Date: 20130307
  Receipt Date: 20130307
  Transmission Date: 20140127
  Serious: Yes (Death)
  Sender: FDA-Public Use
  Company Number: US-MPIJNJ-2013-01765

PATIENT
  Sex: Male

DRUGS (1)
  1. VELCADE [Suspect]
     Indication: LYMPHOMA
     Dosage: UNK
     Dates: start: 20130213

REACTIONS (2)
  - Death [Fatal]
  - Off label use [Unknown]
